FAERS Safety Report 5617380-1 (Version None)
Quarter: 2008Q1

REPORT INFORMATION
  Report Type: 
  Country: None (occurrence: None)
  Receive Date: 20080207
  Receipt Date: 20070730
  Transmission Date: 20080703
  Serious: No
  Sender: FDA-Public Use
  Company Number: A0666902A

PATIENT
  Age: 56 Year
  Sex: Female

DRUGS (6)
  1. PAROXETINE [Suspect]
     Indication: DEPRESSION
     Dosage: 20MG PER DAY
     Route: 048
     Dates: start: 20060101
  2. CLONIDINE [Concomitant]
  3. ALLEGRA [Concomitant]
  4. NAPROSYN [Concomitant]
  5. ACTONEL [Concomitant]
  6. ZOCOR [Concomitant]

REACTIONS (4)
  - BEDRIDDEN [None]
  - PARAESTHESIA [None]
  - TINNITUS [None]
  - WITHDRAWAL SYNDROME [None]
